FAERS Safety Report 7668735-5 (Version None)
Quarter: 2011Q3

REPORT INFORMATION
  Report Type: 
  Country: None (occurrence: None)
  Receive Date: 20110808
  Receipt Date: 20110727
  Transmission Date: 20111222
  Serious: Yes (Death, Hospitalization)
  Sender: FDA-Public Use
  Company Number: JP-SANOFI-AVENTIS-2011SA049110

PATIENT

DRUGS (5)
  1. GLYBURIDE [Suspect]
     Route: 065
  2. INSULIN [Suspect]
     Route: 065
  3. SULFONAMIDES, UREA DERIVATIVES [Suspect]
     Route: 065
  4. GLICLAZIDE [Suspect]
     Route: 065
  5. GLIMEPIRIDE [Suspect]
     Route: 065

REACTIONS (4)
  - HYPOGLYCAEMIA [None]
  - BRAIN INJURY [None]
  - APALLIC SYNDROME [None]
  - PNEUMONIA [None]
